FAERS Safety Report 4928329-9 (Version None)
Quarter: 2006Q1

REPORT INFORMATION
  Report Type: 
  Country: None (occurrence: None)
  Receive Date: 20060223
  Receipt Date: 20060206
  Transmission Date: 20060701
  Serious: Yes (Hospitalization)
  Sender: FDA-Public Use
  Company Number: AU200602001707

PATIENT
  Age: 3 Year
  Sex: Female
  Weight: 16.6 kg

DRUGS (3)
  1. HUMATROPE [Suspect]
     Indication: HYPOPITUITARISM
     Dosage: UNK
     Route: 065
  2. HYDROCORTISONE [Concomitant]
  3. LEVOTHYROXINE SODIUM [Concomitant]

REACTIONS (4)
  - DRUG DOSE OMISSION [None]
  - HYPOGLYCAEMIA [None]
  - LOSS OF CONSCIOUSNESS [None]
  - VIRAL INFECTION [None]
